FAERS Safety Report 20765061 (Version 3)
Quarter: 2024Q3

REPORT INFORMATION
  Report Type: Spontaneous
  Country: US (occurrence: US)
  Receive Date: 20220428
  Receipt Date: 20240716
  Transmission Date: 20241017
  Serious: No
  Sender: SANOFI AVENTIS
  Company Number: US-SA-SAC20220421000212

PATIENT
  Age: 29 Year
  Sex: Female

DRUGS (1)
  1. DUPIXENT [Suspect]
     Active Substance: DUPILUMAB
     Indication: Dermatitis atopic
     Dosage: 300 MG, QOW
     Route: 058
     Dates: start: 202201

REACTIONS (5)
  - Conjunctivitis [Unknown]
  - Ocular hyperaemia [Unknown]
  - Dry eye [Unknown]
  - Drug effect less than expected [Unknown]
  - Dry eye [Unknown]

NARRATIVE: CASE EVENT DATE: 20220201
